FAERS Safety Report 4700564-4 (Version None)
Quarter: 2005Q2

REPORT INFORMATION
  Report Type: 
  Country: None (occurrence: None)
  Receive Date: 20050627
  Receipt Date: 20050627
  Transmission Date: 20051028
  Serious: Yes (Disabling)
  Sender: FDA-Public Use
  Company Number: None

PATIENT
  Age: 44 Year
  Sex: Male
  Weight: 93.8946 kg

DRUGS (6)
  1. LEVAQUIN [Suspect]
     Indication: MASTOIDITIS
     Dosage: 500 MG 1 DAILY ORAL
     Route: 048
     Dates: start: 20050507, end: 20050509
  2. LEVAQUIN [Suspect]
     Indication: OTITIS MEDIA ACUTE
     Dosage: 500 MG 1 DAILY ORAL
     Route: 048
     Dates: start: 20050507, end: 20050509
  3. LEVAQUIN [Suspect]
     Indication: MASTOIDITIS
     Dosage: 750 MG 1 DAILY ORAL
     Route: 048
     Dates: start: 20050512, end: 20050512
  4. LEVAQUIN [Suspect]
     Indication: OTITIS MEDIA ACUTE
     Dosage: 750 MG 1 DAILY ORAL
     Route: 048
     Dates: start: 20050512, end: 20050512
  5. ROCEPHIN [Concomitant]
  6. VANCOMYCIN [Concomitant]

REACTIONS (12)
  - ANXIETY [None]
  - DEAFNESS [None]
  - DIARRHOEA [None]
  - HEADACHE [None]
  - INSOMNIA [None]
  - MUSCLE SPASMS [None]
  - MUSCLE TWITCHING [None]
  - NAUSEA [None]
  - PANIC ATTACK [None]
  - TREMOR [None]
  - VISUAL DISTURBANCE [None]
  - VOMITING [None]
